FAERS Safety Report 7372399-8 (Version None)
Quarter: 2011Q1

REPORT INFORMATION
  Report Type: 
  Country: None (occurrence: None)
  Receive Date: 20110324
  Receipt Date: 20110318
  Transmission Date: 20110831
  Serious: Yes (Other)
  Sender: FDA-Public Use
  Company Number: CA-PURDUE-CAN-2011-0001794

PATIENT
  Age: 50 Year
  Sex: Male

DRUGS (7)
  1. BUTRANS TRANSDERMAL PATCH - 10 MCG/HR [Suspect]
     Indication: FIBROMYALGIA
     Dosage: 10 MCG, Q1H
     Route: 062
     Dates: start: 20110126, end: 20110216
  2. BUTRANS TRANSDERMAL PATCH - 20 MCG/HR [Suspect]
     Indication: FIBROMYALGIA
     Dosage: 20 MCG, Q1H
     Route: 062
     Dates: start: 20110216
  3. TYLENOL W/ CODEINE NO. 3 [Concomitant]
     Indication: PRODUCT USED FOR UNKNOWN INDICATION
  4. ARTHROTEC [Concomitant]
     Indication: PRODUCT USED FOR UNKNOWN INDICATION
  5. ANTIHYPERTENSIVES [Concomitant]
     Indication: HYPERTENSION
  6. ANTIVIRALS [Concomitant]
     Indication: PRODUCT USED FOR UNKNOWN INDICATION
  7. FLEXERIL [Concomitant]
     Indication: MUSCLE TIGHTNESS

REACTIONS (8)
  - APPLICATION SITE ERYTHEMA [None]
  - APPLICATION SITE PAIN [None]
  - APPLICATION SITE EXFOLIATION [None]
  - APPLICATION SITE SWELLING [None]
  - APPLICATION SITE RASH [None]
  - APPLICATION SITE PRURITUS [None]
  - PRODUCT ADHESION ISSUE [None]
  - APPLICATION SITE HYPERSENSITIVITY [None]
